FAERS Safety Report 16117731 (Version 1)
Quarter: 2019Q1

REPORT INFORMATION
  Report Type: Spontaneous
  Country: RU (occurrence: RU)
  Receive Date: 20190326
  Receipt Date: 20190326
  Transmission Date: 20190418
  Serious: Yes (Life-Threatening, Other)
  Sender: FDA-Public Use
  Company Number: RU-ASTRAZENECA-2019SE44938

PATIENT
  Age: 3 Year
  Sex: Male

DRUGS (1)
  1. PULMICORT TURBUHALER [Suspect]
     Active Substance: BUDESONIDE
     Indication: STENOSIS
     Dosage: 250.0MG ONCE/SINGLE ADMINISTRATION
     Route: 055

REACTIONS (5)
  - Cyanosis [Unknown]
  - Crying [Unknown]
  - Tachypnoea [Unknown]
  - Hypersensitivity [Unknown]
  - Respiratory arrest [Unknown]
